FAERS Safety Report 14032481 (Version 1)
Quarter: 2017Q4

REPORT INFORMATION
  Report Type: Spontaneous
  Country: US (occurrence: US)
  Receive Date: 20171002
  Receipt Date: 20171002
  Transmission Date: 20180321
  Serious: No
  Sender: FDA-Public Use
  Company Number: US-GALDERMA-US17006235

PATIENT
  Sex: Female

DRUGS (1)
  1. METRONIDAZOLE (METRONIDAZOLE) [Suspect]
     Active Substance: METRONIDAZOLE
     Indication: ROSACEA
     Dosage: 0.75%
     Route: 061

REACTIONS (1)
  - Rosacea [Unknown]
